FAERS Safety Report 8153524-8 (Version None)
Quarter: 2012Q1

REPORT INFORMATION
  Report Type: 
  Country: None (occurrence: None)
  Receive Date: 20120215
  Receipt Date: 20120202
  Transmission Date: 20120608
  Serious: Yes (Death, Other)
  Sender: FDA-Public Use
  Company Number: MC201200069

PATIENT

DRUGS (1)
  1. ANGIOMAX [Suspect]
     Indication: PERCUTANEOUS CORONARY INTERVENTION
     Dosage: BOLUS, INTRAVENOUS; INFUSION, INTRAVENOUS
     Route: 040

REACTIONS (2)
  - UNDERDOSE [None]
  - WRONG TECHNIQUE IN DRUG USAGE PROCESS [None]
